FAERS Safety Report 6259365-0 (Version None)
Quarter: 2009Q3

REPORT INFORMATION
  Report Type: 
  Country: None (occurrence: None)
  Receive Date: 20090706
  Receipt Date: 20090629
  Transmission Date: 20100115
  Serious: No
  Sender: FDA-Public Use
  Company Number: 20096969

PATIENT
  Age: 76 Year
  Sex: Female

DRUGS (1)
  1. LIORESAL [Suspect]
     Indication: MUSCLE SPASTICITY
     Dosage: MCG, DAILY, INTRATHECAL
     Route: 039

REACTIONS (4)
  - CATHETER RELATED INFECTION [None]
  - INCISION SITE COMPLICATION [None]
  - PURULENCE [None]
  - WOUND DEHISCENCE [None]
